FAERS Safety Report 21651465 (Version 1)
Quarter: 2022Q4

REPORT INFORMATION
  Report Type: Spontaneous
  Country: US (occurrence: US)
  Receive Date: 20221128
  Receipt Date: 20221128
  Transmission Date: 20230113
  Serious: Yes (Life-Threatening, Hospitalization)
  Sender: FDA-Public Use
  Company Number: US-MYLANLABS-2021M1025268

PATIENT
  Age: 57 Year
  Sex: Male

DRUGS (7)
  1. DEXAMETHASONE [Suspect]
     Active Substance: DEXAMETHASONE
     Indication: Neurotoxicity
     Dosage: UNK
     Route: 065
  2. FLUDARABINE [Suspect]
     Active Substance: FLUDARABINE PHOSPHATE
     Indication: Bone marrow conditioning regimen
     Dosage: UNK
     Route: 065
  3. CYCLOPHOSPHAMIDE [Suspect]
     Active Substance: CYCLOPHOSPHAMIDE
     Indication: Bone marrow conditioning regimen
     Dosage: UNK
     Route: 065
  4. SILTUXIMAB [Suspect]
     Active Substance: SILTUXIMAB
     Indication: Neurotoxicity
     Dosage: 800 MILLIGRAM (RECEIVED ON DAY 8)
     Route: 065
  5. SOLU-MEDROL [Suspect]
     Active Substance: METHYLPREDNISOLONE SODIUM SUCCINATE
     Indication: Neurotoxicity
     Dosage: 1 GRAM (ON DAYS 8-10 AND ON 26-28)
     Route: 065
  6. TOCILIZUMAB [Suspect]
     Active Substance: TOCILIZUMAB
     Indication: Cytokine release syndrome
     Dosage: 560 MILLIGRAM (RECEIVED ON DAYS 2 AND 3)
     Route: 065
  7. GANCICLOVIR [Concomitant]
     Active Substance: GANCICLOVIR
     Indication: Human herpesvirus 6 encephalitis
     Dosage: 1.25 MILLIGRAM/KILOGRAM
     Route: 065

REACTIONS (18)
  - Cerebellar haemorrhage [Recovering/Resolving]
  - Human herpesvirus 6 encephalitis [Recovering/Resolving]
  - Anal incontinence [Recovering/Resolving]
  - Disturbance in attention [Recovering/Resolving]
  - Thinking abnormal [Recovering/Resolving]
  - Dysphemia [Recovering/Resolving]
  - Nervous system disorder [Recovering/Resolving]
  - Anxiety [Recovering/Resolving]
  - Agitation [Recovering/Resolving]
  - Hypothermia [Recovering/Resolving]
  - Somnolence [Recovering/Resolving]
  - Affect lability [Recovering/Resolving]
  - Repetitive speech [Recovering/Resolving]
  - Delirium [Recovering/Resolving]
  - Leukoencephalopathy [Recovering/Resolving]
  - Dysarthria [Recovering/Resolving]
  - Speech disorder [Recovering/Resolving]
  - Confusional state [Recovering/Resolving]
